FAERS Safety Report 18321096 (Version 1)
Quarter: 2020Q3

REPORT INFORMATION
  Report Type: Spontaneous
  Country: US (occurrence: US)
  Receive Date: 20200929
  Receipt Date: 20200929
  Transmission Date: 20201103
  Serious: Yes (Other)
  Sender: FDA-Public Use
  Company Number: US-CELLTRION INC.-2020US027940

PATIENT

DRUGS (2)
  1. TRUXIMA [Suspect]
     Active Substance: RITUXIMAB-ABBS
     Indication: SYSTEMIC LUPUS ERYTHEMATOSUS
  2. TRUXIMA [Suspect]
     Active Substance: RITUXIMAB-ABBS
     Indication: LUPUS NEPHRITIS
     Dosage: UNK
     Dates: start: 202009

REACTIONS (5)
  - Pharyngeal swelling [Unknown]
  - Urticaria [Unknown]
  - Dyspnoea [Unknown]
  - Oropharyngeal pain [Unknown]
  - Off label use [Unknown]

NARRATIVE: CASE EVENT DATE: 202009
